FAERS Safety Report 11225537 (Version 1)
Quarter: 2015Q2

REPORT INFORMATION
  Report Type: Report from Study
  Country: FR (occurrence: FR)
  Receive Date: 20150629
  Receipt Date: 20150629
  Transmission Date: 20150821
  Serious: Yes (Hospitalization)
  Sender: FDA-Public Use
  Company Number: FR-GLAXOSMITHKLINE-FR2015GSK091787

PATIENT

DRUGS (13)
  1. CARDENSIEL [Concomitant]
     Active Substance: BISOPROLOL FUMARATE
  2. NITRIDERM [Concomitant]
     Active Substance: NITROGLYCERIN
  3. IMOVANE [Concomitant]
     Active Substance: ZOPICLONE
  4. LASILIX [Concomitant]
     Active Substance: FUROSEMIDE
  5. ALDACTONE [Concomitant]
     Active Substance: SPIRONOLACTONE
  6. KARDEGIC [Concomitant]
     Active Substance: ASPIRIN LYSINE
  7. KALEORID [Concomitant]
     Active Substance: POTASSIUM CHLORIDE
  8. OMEGA-3-ACID ETHYL ESTERS. [Suspect]
     Active Substance: OMEGA-3-ACID ETHYL ESTERS
     Indication: ISCHAEMIC HEART DISEASE PROPHYLAXIS
     Dosage: UNK
     Dates: start: 20090319, end: 20090911
  9. IKOREL [Concomitant]
     Active Substance: NICORANDIL
  10. TRIATEC [Concomitant]
     Active Substance: RAMIPRIL
  11. REMINYL [Concomitant]
     Active Substance: GALANTAMINE
  12. PLAVIX [Concomitant]
     Active Substance: CLOPIDOGREL BISULFATE
  13. TAHOR [Concomitant]
     Active Substance: ATORVASTATIN CALCIUM

REACTIONS (1)
  - Fall [Unknown]

NARRATIVE: CASE EVENT DATE: 20100503
